FAERS Safety Report 4640908-5 (Version None)
Quarter: 2005Q2

REPORT INFORMATION
  Report Type: 
  Country: None (occurrence: None)
  Receive Date: 20050324
  Receipt Date: 20050121
  Transmission Date: 20051028
  Serious: No
  Sender: FDA-Public Use
  Company Number: 211937

PATIENT
  Age: 74 Year
  Sex: Female
  Weight: 92.5 kg

DRUGS (3)
  1. AVASTIN [Suspect]
     Dosage: 450 MG, Q2W, INTRAVENOUS
     Route: 042
     Dates: start: 20040720
  2. LEUCOVORIN CALCIUM [Concomitant]
  3. FLUOROURACIL [Concomitant]

REACTIONS (1)
  - POLYCYTHAEMIA [None]
